FAERS Safety Report 5404198-8 (Version None)
Quarter: 2007Q3

REPORT INFORMATION
  Report Type: 
  Country: None (occurrence: None)
  Receive Date: 20070731
  Receipt Date: 20070723
  Transmission Date: 20080115
  Serious: Yes (Hospitalization)
  Sender: FDA-Public Use
  Company Number: 2007BI011415

PATIENT
  Age: 41 Year
  Sex: Female
  Weight: 81.6475 kg

DRUGS (6)
  1. AVONEX [Suspect]
     Indication: MULTIPLE SCLEROSIS
     Dosage: 30 UG;QW;IM
     Route: 030
     Dates: start: 19990101
  2. AVONEX [Suspect]
     Indication: MULTIPLE SCLEROSIS
     Dosage: 30 UG;QW;IM
     Route: 030
     Dates: start: 20070301, end: 20070521
  3. ETODOLAC [Concomitant]
  4. FLEXERIL [Concomitant]
  5. LYRICA [Concomitant]
  6. LORTAB [Concomitant]

REACTIONS (7)
  - DELIRIUM [None]
  - GAIT DISTURBANCE [None]
  - HYPERVENTILATION [None]
  - INJECTION SITE ERYTHEMA [None]
  - NEURALGIA [None]
  - PAIN [None]
  - WEIGHT INCREASED [None]
